FAERS Safety Report 4710287-3 (Version None)
Quarter: 2005Q3

REPORT INFORMATION
  Report Type: 
  Country: None (occurrence: None)
  Receive Date: 20050711
  Receipt Date: 20050629
  Transmission Date: 20060218
  Serious: Yes (Death)
  Sender: FDA-Public Use
  Company Number: JP-JNJFOC-20050306980

PATIENT
  Sex: Male
  Weight: 52 kg

DRUGS (8)
  1. REMICADE [Suspect]
     Route: 042
  2. REMICADE [Suspect]
     Indication: CROHN'S DISEASE
     Route: 042
  3. ENTERAL NUTRITION [Concomitant]
  4. PREDONINE [Concomitant]
     Indication: CROHN'S DISEASE
     Route: 049
  5. PENTASA [Concomitant]
     Indication: CROHN'S DISEASE
     Route: 049
  6. IMURAN [Concomitant]
     Indication: CROHN'S DISEASE
     Route: 049
  7. TOPOTECIN [Concomitant]
     Dosage: 40 MG EVERY 1 TO 3 WEEKS
     Route: 042
  8. TOPOTECIN [Concomitant]
     Indication: CHEMOTHERAPY
     Dosage: 40 MG EVERY 1-3 WEEKS
     Route: 042

REACTIONS (2)
  - ANAL CANCER [None]
  - NAUSEA [None]
